FAERS Safety Report 20783268 (Version 6)
Quarter: 2022Q3

REPORT INFORMATION
  Report Type: Spontaneous
  Country: US (occurrence: US)
  Receive Date: 20220504
  Receipt Date: 20220721
  Transmission Date: 20221026
  Serious: No
  Sender: FDA-Public Use
  Company Number: US-GLAXOSMITHKLINE-US2022072439

PATIENT
  Age: 64 Year
  Sex: Male

DRUGS (2)
  1. NUCALA [Suspect]
     Active Substance: MEPOLIZUMAB
     Indication: Eosinophilic granulomatosis with polyangiitis
     Dosage: 100 MG/ML, Z 3 INJECTIONS OF 100 MG/ MONTH, 100MG/ML
     Dates: start: 20220430
  2. NUCALA [Suspect]
     Active Substance: MEPOLIZUMAB
     Indication: Asthma

REACTIONS (2)
  - Product dose omission in error [Unknown]
  - Product complaint [Unknown]

NARRATIVE: CASE EVENT DATE: 20220430
